FAERS Safety Report 8171136-7 (Version None)
Quarter: 2012Q1

REPORT INFORMATION
  Report Type: 
  Country: None (occurrence: None)
  Receive Date: 20120113
  Receipt Date: 20111122
  Transmission Date: 20120608
  Serious: No
  Sender: FDA-Public Use
  Company Number: 2011S1000108

PATIENT
  Age: 54 Year
  Sex: Female
  Weight: 142.8831 kg

DRUGS (9)
  1. HYDROCORTISONE [Concomitant]
  2. PERCOCET [Concomitant]
  3. DIURETICS [Concomitant]
  4. INSULIN [Concomitant]
  5. ATIVAN [Concomitant]
  6. TYLENOL (CAPLET) [Concomitant]
  7. ALLEGRA [Concomitant]
  8. KRYSTEXXA [Suspect]
     Indication: GOUTY TOPHUS
     Dosage: 8 MG;X1;IV 8 MG;X1;IV
     Route: 042
     Dates: start: 20111125, end: 20111125
  9. KRYSTEXXA [Suspect]
     Indication: GOUTY TOPHUS
     Dosage: 8 MG;X1;IV 8 MG;X1;IV
     Route: 042
     Dates: start: 20111110, end: 20111110

REACTIONS (3)
  - CONDITION AGGRAVATED [None]
  - GOUT [None]
  - PRURITUS GENERALISED [None]
